FAERS Safety Report 10356889 (Version 1)
Quarter: 2014Q3

REPORT INFORMATION
  Report Type: Spontaneous
  Country: RO (occurrence: RO)
  Receive Date: 20140801
  Receipt Date: 20140801
  Transmission Date: 20150326
  Serious: Yes (Other)
  Sender: FDA-Public Use
  Company Number: RO-SA-2014SA099598

PATIENT
  Age: 15 Year
  Sex: Male

DRUGS (2)
  1. CHORIONIC GONADOTROPHIN [Concomitant]
     Active Substance: CHORIOGONADOTROPIN ALFA
     Indication: TESTICULAR RETRACTION
  2. DDAVP [Suspect]
     Active Substance: DESMOPRESSIN ACETATE
     Indication: DIABETES INSIPIDUS
     Route: 045

REACTIONS (1)
  - Deep vein thrombosis [Unknown]
